FAERS Safety Report 17959446 (Version 1)
Quarter: 2020Q2

REPORT INFORMATION
  Report Type: Spontaneous
  Country: TR (occurrence: TR)
  Receive Date: 20200629
  Receipt Date: 20200629
  Transmission Date: 20200714
  Serious: Yes (Death, Life-Threatening, Disabling, Other)
  Sender: FDA-Public Use
  Company Number: TR-AMGEN-TURSP2020097833

PATIENT
  Age: 67 Year
  Sex: Male

DRUGS (5)
  1. ADALIMUMAB [Suspect]
     Active Substance: ADALIMUMAB
     Indication: MYELODYSPLASTIC SYNDROME
     Dosage: 40 MILLIGRAM, Q2WK
     Route: 065
  2. ADALIMUMAB [Suspect]
     Active Substance: ADALIMUMAB
     Dosage: 40 MILLIGRAM, QWK
     Route: 065
  3. AZACITIDINE. [Concomitant]
     Active Substance: AZACITIDINE
     Indication: MYELODYSPLASTIC SYNDROME
  4. METHYLPREDNISOLONE. [Concomitant]
     Active Substance: METHYLPREDNISOLONE
     Dosage: 01 MILLIGRAM/KILOGRAM, QD
  5. METHYLPREDNISOLONE. [Concomitant]
     Active Substance: METHYLPREDNISOLONE
     Indication: MYELODYSPLASTIC SYNDROME
     Dosage: 0.5 MILLIGRAM/KILOGRAM, QD

REACTIONS (9)
  - Weight decreased [Recovering/Resolving]
  - Behcet^s syndrome [Unknown]
  - Pneumonia aspiration [Unknown]
  - Ischaemic stroke [Unknown]
  - Intestinal perforation [Unknown]
  - General physical health deterioration [Unknown]
  - Septic shock [Fatal]
  - Off label use [Unknown]
  - Intestinal haemorrhage [Unknown]
